FAERS Safety Report 9713945 (Version 1)
Quarter: 2013Q4

REPORT INFORMATION
  Report Type: Spontaneous
  Country: US (occurrence: US)
  Receive Date: 20131126
  Receipt Date: 20131126
  Transmission Date: 20140711
  Serious: No
  Sender: FDA-Public Use
  Company Number: US-GILEAD-2008-0018236

PATIENT
  Age: 56 Year
  Sex: Female
  Weight: 77.11 kg

DRUGS (5)
  1. LETAIRIS [Suspect]
     Indication: PULMONARY HYPERTENSION
     Route: 048
     Dates: start: 20080725
  2. CARTIA [Concomitant]
     Route: 048
  3. LISINOPRIL [Concomitant]
     Route: 048
  4. NEXIUM [Concomitant]
     Route: 048
  5. CYCLOPHOSPHAMIDE [Concomitant]
     Route: 048

REACTIONS (3)
  - Heart rate increased [None]
  - Muscular weakness [None]
  - Headache [None]
